FAERS Safety Report 20581996 (Version 1)
Quarter: 2022Q1

REPORT INFORMATION
  Report Type: Other
  Country: US (occurrence: None)
  Receive Date: 20220311
  Receipt Date: 20220311
  Transmission Date: 20220423
  Serious: Yes (Other)
  Sender: FDA-Public Use
  Company Number: US-ROCHE-3040232

PATIENT
  Age: 79 Year
  Sex: Female
  Weight: 79.450 kg

DRUGS (16)
  1. AVASTIN [Suspect]
     Active Substance: BEVACIZUMAB
     Indication: Macular degeneration
     Dosage: INJECTED INTO RIGHT EYE ;ONGOING: YES
     Route: 065
  2. AVASTIN [Suspect]
     Active Substance: BEVACIZUMAB
     Dosage: INJECTED INTO BOTH EYE ;ONGOING: NO
     Route: 065
  3. AVASTIN [Suspect]
     Active Substance: BEVACIZUMAB
     Dosage: INJECTED IN RIGHT EYE ;ONGOING: NO
     Route: 065
  4. LISINOPRIL [Suspect]
     Active Substance: LISINOPRIL
     Indication: Hypertension
     Dosage: ONGOING: NO
     Route: 065
  5. OTEZLA [Suspect]
     Active Substance: APREMILAST
     Indication: Psoriasis
     Route: 065
  6. THYROXINE [Concomitant]
     Active Substance: LEVOTHYROXINE
     Indication: Hypothyroidism
     Route: 048
  7. HYDROCODONE [Concomitant]
     Active Substance: HYDROCODONE
     Indication: Pain
     Dosage: TAKES AS NEEDED A COUPLE OF TIMES A DAY
     Route: 048
  8. LOVASTATIN [Concomitant]
     Active Substance: LOVASTATIN
     Indication: Hypertension
     Route: 048
  9. HYDRALAZINE [Concomitant]
     Active Substance: HYDRALAZINE HYDROCHLORIDE
     Indication: Hypertension
     Route: 048
  10. ROSUVASTATIN [Concomitant]
     Active Substance: ROSUVASTATIN
     Indication: Blood cholesterol increased
     Dosage: ONGOING YES, EVERY OTHER DAY
     Route: 048
  11. ULORIC [Concomitant]
     Active Substance: FEBUXOSTAT
     Indication: Gout
     Dosage: ONGOING YES
     Route: 048
  12. COSENTYX [Concomitant]
     Active Substance: SECUKINUMAB
     Indication: Psoriasis
     Dosage: ONGOING YES, 2-150 MG INJECTIONS IN THIGH OR STOMACH
  13. FUROSEMIDE [Concomitant]
     Active Substance: FUROSEMIDE
     Indication: Product used for unknown indication
     Dosage: ONGOING YES
     Route: 048
  14. FERROUS SULFATE ANHYDROUS [Concomitant]
     Active Substance: FERROUS SULFATE ANHYDROUS
     Dosage: ONGOING YES
     Route: 048
  15. DISODIUM HYDROGEN CITRATE [Concomitant]
     Active Substance: DISODIUM HYDROGEN CITRATE
     Indication: Nephropathy
     Dosage: ONGOING YES MIX WITH WATER
     Route: 048
  16. ZETIA [Concomitant]
     Active Substance: EZETIMIBE
     Indication: Blood cholesterol increased
     Route: 048

REACTIONS (11)
  - Retinal detachment [Unknown]
  - Nephropathy [Not Recovered/Not Resolved]
  - Visual impairment [Not Recovered/Not Resolved]
  - Scar [Unknown]
  - Eye oedema [Recovered/Resolved]
  - Hypertension [Not Recovered/Not Resolved]
  - Blood cholesterol increased [Not Recovered/Not Resolved]
  - Rash [Not Recovered/Not Resolved]
  - Skin burning sensation [Recovered/Resolved]
  - Pain [Recovered/Resolved]
  - Off label use [Unknown]

NARRATIVE: CASE EVENT DATE: 20220101
